FAERS Safety Report 19173366 (Version 1)
Quarter: 2021Q2

REPORT INFORMATION
  Report Type: Spontaneous
  Country: US (occurrence: US)
  Receive Date: 20210422
  Receipt Date: 20210422
  Transmission Date: 20210717
  Serious: Yes (Death)
  Sender: FDA-Public Use
  Company Number: None

PATIENT
  Age: 63 Year
  Sex: Female

DRUGS (2)
  1. ONTRUZANT [Suspect]
     Active Substance: TRASTUZUMAB-DTTB
     Indication: BREAST CANCER
     Dosage: ?          OTHER FREQUENCY:21 DAYS;?
     Route: 042
     Dates: start: 20190516, end: 20210405
  2. PERJETA [Suspect]
     Active Substance: PERTUZUMAB
     Indication: BREAST CANCER
     Dosage: ?          OTHER FREQUENCY:28 DAYS;?
     Route: 042
     Dates: start: 20210120, end: 20210218

REACTIONS (1)
  - Death [None]

NARRATIVE: CASE EVENT DATE: 20210421
